FAERS Safety Report 18529156 (Version 2)
Quarter: 2021Q1

REPORT INFORMATION
  Report Type: Spontaneous
  Country: US (occurrence: US)
  Receive Date: 20201120
  Receipt Date: 20210114
  Transmission Date: 20210419
  Serious: Yes (Other)
  Sender: FDA-Public Use
  Company Number: US-009507513-2011USA011887

PATIENT
  Sex: Male
  Weight: 105.67 kg

DRUGS (58)
  1. GENVOYA [Concomitant]
     Active Substance: COBICISTAT\ELVITEGRAVIR\EMTRICITABINE\TENOFOVIR ALAFENAMIDE FUMARATE
  2. ACYCLOVIR SODIUM. [Concomitant]
     Active Substance: ACYCLOVIR SODIUM
  3. VIAGRA [Concomitant]
     Active Substance: SILDENAFIL CITRATE
  4. CLOBETASOL PROPIONATE. [Concomitant]
     Active Substance: CLOBETASOL PROPIONATE
  5. PRILOSEC [Concomitant]
     Active Substance: OMEPRAZOLE MAGNESIUM
  6. DESCOVY [Concomitant]
     Active Substance: EMTRICITABINE\TENOFOVIR ALAFENAMIDE FUMARATE
  7. CYCLOBENZAPRINE HYDROCHLORIDE. [Concomitant]
     Active Substance: CYCLOBENZAPRINE HYDROCHLORIDE
  8. FLUNISOLIDE. [Concomitant]
     Active Substance: FLUNISOLIDE
  9. OMEPRAZOLE. [Concomitant]
     Active Substance: OMEPRAZOLE
  10. CHANTIX [Concomitant]
     Active Substance: VARENICLINE TARTRATE
  11. ATRIPLA [Suspect]
     Active Substance: EFAVIRENZ\EMTRICITABINE\TENOFOVIR DISOPROXIL FUMARATE
     Indication: HIV INFECTION
     Dosage: UNK
     Route: 048
     Dates: start: 201003, end: 201510
  12. BACTROBAN (MUPIROCIN CALCIUM) [Concomitant]
  13. ECONAZOLE NITRATE. [Concomitant]
     Active Substance: ECONAZOLE NITRATE
  14. VANCOMYCIN [Concomitant]
     Active Substance: VANCOMYCIN
  15. DESOWEN [Concomitant]
     Active Substance: DESONIDE
  16. DOVONEX [Concomitant]
     Active Substance: CALCIPOTRIENE
  17. TRAZODONE HYDROCHLORIDE. [Concomitant]
     Active Substance: TRAZODONE HYDROCHLORIDE
  18. NICOTINE. [Concomitant]
     Active Substance: NICOTINE
  19. ACETAMINOPHEN (+) OXYCODONE HYDROCHLORIDE [Concomitant]
     Active Substance: ACETAMINOPHEN\OXYCODONE HYDROCHLORIDE
  20. RANITIDINE. [Concomitant]
     Active Substance: RANITIDINE
  21. CLINDAMYCIN. [Concomitant]
     Active Substance: CLINDAMYCIN
  22. COLACE [Concomitant]
     Active Substance: DOCUSATE SODIUM
  23. FLEXERIL [Concomitant]
     Active Substance: CYCLOBENZAPRINE HYDROCHLORIDE
  24. CEPHALEXIN. [Concomitant]
     Active Substance: CEPHALEXIN
  25. BENZONATATE. [Concomitant]
     Active Substance: BENZONATATE
  26. TRUVADA [Suspect]
     Active Substance: EMTRICITABINE\TENOFOVIR DISOPROXIL FUMARATE
     Indication: HIV INFECTION
     Dosage: UNK
     Route: 048
     Dates: start: 20051105, end: 2010
  27. TRUVADA [Suspect]
     Active Substance: EMTRICITABINE\TENOFOVIR DISOPROXIL FUMARATE
     Dosage: UNK
     Route: 065
     Dates: start: 201510, end: 201604
  28. KALETRA [Suspect]
     Active Substance: LOPINAVIR\RITONAVIR
     Indication: HIV INFECTION
     Dosage: UNK
     Route: 065
  29. TIVICAY [Concomitant]
     Active Substance: DOLUTEGRAVIR SODIUM
  30. PENICILLIN (UNSPECIFIED) [Concomitant]
     Active Substance: PENICILLIN
  31. ACETAMINOPHEN (+) HYDROCODONE BITARTRATE [Concomitant]
     Active Substance: ACETAMINOPHEN\HYDROCODONE BITARTRATE
  32. DIAZEPAM. [Concomitant]
     Active Substance: DIAZEPAM
  33. KETOCONAZOLE. [Concomitant]
     Active Substance: KETOCONAZOLE
  34. SULFAMETHOXAZOLE (+) TRIMETHOPRIM [Concomitant]
     Active Substance: SULFAMETHOXAZOLE\TRIMETHOPRIM
  35. ERYTHROMYCIN. [Concomitant]
     Active Substance: ERYTHROMYCIN
  36. PERCOCET [Concomitant]
     Active Substance: ACETAMINOPHEN\OXYCODONE HYDROCHLORIDE
  37. FAMCICLOVIR. [Concomitant]
     Active Substance: FAMCICLOVIR
  38. ATARAX [Concomitant]
     Active Substance: HYDROXYZINE HYDROCHLORIDE
  39. SIMETHICONE (DIMETHICONE) [Concomitant]
     Active Substance: DIMETHICONE
  40. REMERON [Concomitant]
     Active Substance: MIRTAZAPINE
  41. MUPIROCIN. [Concomitant]
     Active Substance: MUPIROCIN
  42. PROAIR HFA [Concomitant]
     Active Substance: ALBUTEROL SULFATE
  43. DOXEPIN HYDROCHLORIDE. [Concomitant]
     Active Substance: DOXEPIN HYDROCHLORIDE
  44. HYDROXYZINE HYDROCHLORIDE. [Concomitant]
     Active Substance: HYDROXYZINE HYDROCHLORIDE
  45. CIPROFLOXACIN. [Concomitant]
     Active Substance: CIPROFLOXACIN
  46. LAMIVUDINE. [Concomitant]
     Active Substance: LAMIVUDINE
  47. CICLOPIROX. [Concomitant]
     Active Substance: CICLOPIROX
  48. ALLEGRA [Concomitant]
     Active Substance: FEXOFENADINE HYDROCHLORIDE
  49. ZOVIRAX [Concomitant]
     Active Substance: ACYCLOVIR
  50. REMERON [Suspect]
     Active Substance: MIRTAZAPINE
     Route: 065
  51. PIFELTRO [Concomitant]
     Active Substance: DORAVIRINE
  52. IBUPROFEN. [Concomitant]
     Active Substance: IBUPROFEN
  53. FLUTICASONE. [Concomitant]
     Active Substance: FLUTICASONE
  54. CALCIPOTRIENE. [Concomitant]
     Active Substance: CALCIPOTRIENE
  55. POLYETHYLENE GLYCOL 3350 (+) POTASSIUM CHLORIDE (+) SODIUM CHLORIDE (+ [Concomitant]
  56. CEFTRIAXONE. [Concomitant]
     Active Substance: CEFTRIAXONE
  57. PROVENTIL [Concomitant]
     Active Substance: ALBUTEROL
  58. ZANTAC [Concomitant]
     Active Substance: RANITIDINE HYDROCHLORIDE

REACTIONS (13)
  - Hallucination, auditory [Not Recovered/Not Resolved]
  - Emotional distress [Not Recovered/Not Resolved]
  - Lipodystrophy acquired [Not Recovered/Not Resolved]
  - Weight increased [Unknown]
  - Anxiety [Not Recovered/Not Resolved]
  - Chronic kidney disease [Not Recovered/Not Resolved]
  - Pain [Not Recovered/Not Resolved]
  - Depression [Not Recovered/Not Resolved]
  - Economic problem [Not Recovered/Not Resolved]
  - Multiple injuries [Unknown]
  - Myalgia [Unknown]
  - Anhedonia [Not Recovered/Not Resolved]
  - Osteopenia [Not Recovered/Not Resolved]

NARRATIVE: CASE EVENT DATE: 201603
